FAERS Safety Report 4718303-X (Version None)
Quarter: 2005Q3

REPORT INFORMATION
  Report Type: 
  Country: None (occurrence: None)
  Receive Date: 20050718
  Receipt Date: 20050718
  Transmission Date: 20060218
  Serious: Yes (Disabling)
  Sender: FDA-Public Use
  Company Number: None

PATIENT
  Age: 37 Year
  Sex: Female
  Weight: 89.3586 kg

DRUGS (3)
  1. MEFLOQUINE [Suspect]
     Indication: ADVERSE EVENT
     Dosage: 1 PER WEEK    9 WEEKS   ORAL
     Route: 048
     Dates: start: 20041219, end: 20050228
  2. LEXAPRO [Concomitant]
  3. GINGKO BILOBA [Concomitant]

REACTIONS (25)
  - ABDOMINAL DISTENSION [None]
  - ABDOMINAL PAIN UPPER [None]
  - AMNESIA [None]
  - ANXIETY [None]
  - COGNITIVE DISORDER [None]
  - DEPRESSION [None]
  - DIARRHOEA [None]
  - DISTURBANCE IN ATTENTION [None]
  - DIZZINESS [None]
  - DYSPEPSIA [None]
  - EDUCATIONAL PROBLEM [None]
  - EMOTIONAL DISORDER [None]
  - FATIGUE [None]
  - FEELING ABNORMAL [None]
  - FLATULENCE [None]
  - INFLUENZA LIKE ILLNESS [None]
  - MALAISE [None]
  - MYOCLONUS [None]
  - PAIN [None]
  - PYREXIA [None]
  - READING DISORDER [None]
  - STRESS [None]
  - TINNITUS [None]
  - VISUAL DISTURBANCE [None]
  - WEIGHT DECREASED [None]
